FAERS Safety Report 8059004-2 (Version None)
Quarter: 2012Q1

REPORT INFORMATION
  Report Type: 
  Country: None (occurrence: None)
  Receive Date: 20120120
  Receipt Date: 20110210
  Transmission Date: 20120608
  Serious: No
  Sender: FDA-Public Use
  Company Number: US-BAUSCH-2011BL000878

PATIENT
  Age: 57 Year
  Sex: Female

DRUGS (4)
  1. ALAWAY [Suspect]
     Route: 047
     Dates: start: 20110101, end: 20110101
  2. MULTI-VITAMINS [Concomitant]
     Indication: VITAMIN SUPPLEMENTATION
     Route: 048
  3. ALAWAY [Suspect]
     Indication: EYE ALLERGY
     Route: 047
     Dates: start: 20100101, end: 20110101
  4. ALAWAY [Suspect]
     Route: 047
     Dates: start: 20100101, end: 20110101

REACTIONS (4)
  - EYELID OEDEMA [None]
  - EYELID EXFOLIATION [None]
  - EYE IRRITATION [None]
  - EYELID PAIN [None]
